FAERS Safety Report 7035110-6 (Version None)
Quarter: 2010Q4

REPORT INFORMATION
  Report Type: 
  Country: None (occurrence: None)
  Receive Date: 20101007
  Receipt Date: 20101007
  Transmission Date: 20110411
  Serious: Yes (Other)
  Sender: FDA-Public Use
  Company Number: None

PATIENT
  Age: 56 Year
  Sex: Male
  Weight: 100.6985 kg

DRUGS (1)
  1. GAMMAGARD LIQUID [Suspect]
     Indication: IMMUNODEFICIENCY COMMON VARIABLE
     Dosage: 40 GM Q4WEEKS IV DRIP
     Route: 041
     Dates: start: 20101006, end: 20101006

REACTIONS (3)
  - INFUSION RELATED REACTION [None]
  - MALAISE [None]
  - MUSCLE SPASMS [None]
